FAERS Safety Report 16455975 (Version 1)
Quarter: 2019Q2

REPORT INFORMATION
  Report Type: Spontaneous
  Country: JP (occurrence: JP)
  Receive Date: 20190620
  Receipt Date: 20190620
  Transmission Date: 20190711
  Serious: Yes (Other)
  Sender: FDA-Public Use
  Company Number: JP-GLAXOSMITHKLINE-JP2019JPN082573

PATIENT
  Age: 72 Year
  Sex: Male

DRUGS (4)
  1. MINOXIDIL. [Concomitant]
     Active Substance: MINOXIDIL
     Dosage: UNK
     Route: 061
  2. EPADEL [Concomitant]
     Active Substance: ICOSAPENT
     Dosage: UNK
  3. ZAGALLO [Suspect]
     Active Substance: DUTASTERIDE
     Dosage: 0.5 MG, QD
     Route: 048
     Dates: start: 2017, end: 2019
  4. TAKELDA COMBINATION TABLETS [Concomitant]
     Active Substance: ASPIRIN\LANSOPRAZOLE
     Dosage: UNK

REACTIONS (8)
  - Listless [Not Recovered/Not Resolved]
  - Late onset hypogonadism syndrome [Unknown]
  - Suicidal ideation [Unknown]
  - Somnolence [Not Recovered/Not Resolved]
  - Liver disorder [Not Recovered/Not Resolved]
  - Abulia [Unknown]
  - Malaise [Not Recovered/Not Resolved]
  - Alopecia [Recovering/Resolving]

NARRATIVE: CASE EVENT DATE: 201901
